FAERS Safety Report 10029549 (Version 1)
Quarter: 2014Q1

REPORT INFORMATION
  Report Type: Spontaneous
  Country: US (occurrence: None)
  Receive Date: 20140320
  Receipt Date: 20140320
  Transmission Date: 20141002
  Serious: Yes (Other)
  Sender: FDA-Public Use
  Company Number: None

PATIENT
  Age: 40 Year
  Sex: Male
  Weight: 73.48 kg

DRUGS (1)
  1. NASACORT [Suspect]
     Indication: HYPERSENSITIVITY
     Dosage: 2 SPRAYS EACH NOSTREL
     Route: 055
     Dates: start: 20140301, end: 20140318

REACTIONS (1)
  - Depression [None]
